FAERS Safety Report 8043139-4 (Version None)
Quarter: 2012Q1

REPORT INFORMATION
  Report Type: 
  Country: None (occurrence: None)
  Receive Date: 20120112
  Receipt Date: 20111230
  Transmission Date: 20120608
  Serious: Yes (Other)
  Sender: FDA-Public Use
  Company Number: PHHY2011US114686

PATIENT
  Age: 52 Year
  Sex: Male

DRUGS (16)
  1. POTASSIUM CHLORIDE [Concomitant]
  2. METYRAPONE [Suspect]
  3. ACETYLSALICYLIC ACID SRT [Concomitant]
  4. METFORMIN HCL [Concomitant]
     Dosage: UNK
  5. OXYCODONE AND ACETAMINOPHEN [Concomitant]
     Dosage: UNK
  6. INSULIN [Concomitant]
  7. WARFARIN SODIUM [Concomitant]
  8. FUROSEMIDE [Concomitant]
     Dosage: UNK
  9. SPIRONOLACTONE [Concomitant]
  10. RISEDRONATE SODIUM [Concomitant]
     Dosage: UNK
  11. KETOCONAZOLE [Concomitant]
  12. ANTIBIOTICS [Concomitant]
  13. HYDRALAZINE HCL [Concomitant]
     Dosage: UNK
  14. VALSARTAN [Concomitant]
  15. METOPROLOL [Concomitant]
  16. AMLODIPINE [Concomitant]

REACTIONS (1)
  - MENTAL STATUS CHANGES [None]
